FAERS Safety Report 6274384-6 (Version None)
Quarter: 2009Q3

REPORT INFORMATION
  Report Type: 
  Country: None (occurrence: None)
  Receive Date: 20090720
  Receipt Date: 20090624
  Transmission Date: 20100115
  Serious: Yes (Other)
  Sender: FDA-Public Use
  Company Number: MX-ROCHE-643917

PATIENT
  Sex: Female
  Weight: 54 kg

DRUGS (7)
  1. PEG-INTERFERON A-2A (RO 25-8310) [Suspect]
     Indication: HEPATITIS C
     Route: 058
     Dates: start: 20090209
  2. RIBAVIRIN [Suspect]
     Indication: HEPATITIS C
     Route: 048
     Dates: start: 20090209
  3. FENFORMINA [Concomitant]
     Dosage: DRUG REPORTED AS FENFORMINE
     Route: 048
     Dates: start: 20080101
  4. GLIBENCLAMIDE [Concomitant]
     Dosage: FREQ: QD
     Route: 048
     Dates: start: 20080901
  5. ACARBOSE [Concomitant]
     Route: 048
     Dates: start: 20080901
  6. CARBAMAZEPINE [Concomitant]
     Indication: DRUG USE FOR UNKNOWN INDICATION
     Dosage: FREQ: QD
     Route: 048
     Dates: start: 20070101
  7. DICLOFENAC [Concomitant]
     Indication: DRUG USE FOR UNKNOWN INDICATION
     Dosage: FREQ: QD
     Route: 048
     Dates: start: 20070101

REACTIONS (2)
  - EPISTAXIS [None]
  - PNEUMONIA ASPIRATION [None]
